FAERS Safety Report 15276864 (Version 3)
Quarter: 2018Q3

REPORT INFORMATION
  Report Type: Report from Study
  Country: US (occurrence: US)
  Receive Date: 20180814
  Receipt Date: 20180830
  Transmission Date: 20181010
  Serious: Yes (Hospitalization, Other)
  Sender: FDA-Public Use
  Company Number: US-JNJFOC-20180813497

PATIENT
  Age: 77 Year
  Sex: Male

DRUGS (17)
  1. IMBRUVICA [Suspect]
     Active Substance: IBRUTINIB
     Indication: WALDENSTROM^S MACROGLOBULINAEMIA
     Route: 048
     Dates: start: 20180421
  2. TYLENOL [Concomitant]
     Active Substance: ACETAMINOPHEN
  3. BENZONATATE. [Concomitant]
     Active Substance: BENZONATATE
  4. LISINOPRIL. [Concomitant]
     Active Substance: LISINOPRIL
  5. PREDNISONE. [Concomitant]
     Active Substance: PREDNISONE
  6. GARLIC. [Concomitant]
     Active Substance: GARLIC
  7. PANTOPRAZOLE [Concomitant]
     Active Substance: PANTOPRAZOLE
  8. IMBRUVICA [Suspect]
     Active Substance: IBRUTINIB
     Indication: WALDENSTROM^S MACROGLOBULINAEMIA
     Route: 048
     Dates: start: 20150514
  9. METOPROLOL SUCCINATE. [Concomitant]
     Active Substance: METOPROLOL SUCCINATE
  10. SUCRALFATE. [Concomitant]
     Active Substance: SUCRALFATE
  11. TOVIAZ [Concomitant]
     Active Substance: FESOTERODINE FUMARATE
  12. ATORVASTATIN [Concomitant]
     Active Substance: ATORVASTATIN
  13. WARFARIN [Concomitant]
     Active Substance: WARFARIN
  14. MYRBETRIQ [Concomitant]
     Active Substance: MIRABEGRON
  15. IMBRUVICA [Suspect]
     Active Substance: IBRUTINIB
     Indication: WALDENSTROM^S MACROGLOBULINAEMIA
     Route: 048
     Dates: start: 20180522
  16. MAGNESIUM [Concomitant]
     Active Substance: MAGNESIUM
  17. LEVOTHYROXINE. [Concomitant]
     Active Substance: LEVOTHYROXINE

REACTIONS (9)
  - Nasopharyngitis [Unknown]
  - Hypotension [Unknown]
  - Chest pain [Unknown]
  - Asthenia [Recovered/Resolved]
  - Gait disturbance [Unknown]
  - Coronary artery occlusion [Unknown]
  - Heart rate increased [Unknown]
  - Cardiac valve disease [Unknown]
  - Fatigue [Recovered/Resolved]

NARRATIVE: CASE EVENT DATE: 2018
